FAERS Safety Report 9423729 (Version 1)
Quarter: 2013Q3

REPORT INFORMATION
  Report Type: Report from Study
  Country: US (occurrence: US)
  Receive Date: 20130728
  Receipt Date: 20130728
  Transmission Date: 20140515
  Serious: Yes (Other)
  Sender: FDA-Public Use
  Company Number: PHEH2013US015564

PATIENT
  Sex: Female

DRUGS (1)
  1. ILARIS [Suspect]
     Dosage: 60 MG, UNK

REACTIONS (1)
  - Heart rate increased [Unknown]
